FAERS Safety Report 25817493 (Version 1)
Quarter: 2025Q3

REPORT INFORMATION
  Report Type: Spontaneous
  Country: EU (occurrence: EU)
  Receive Date: 20250918
  Receipt Date: 20250918
  Transmission Date: 20251021
  Serious: Yes (Life-Threatening, Hospitalization, Other)
  Sender: AUROBINDO
  Company Number: EU-ALMIRALL-PT-2025-2310

PATIENT
  Age: 66 Year
  Sex: Male

DRUGS (2)
  1. DICLOFENAC [Suspect]
     Active Substance: DICLOFENAC
     Indication: Analgesic therapy
     Route: 065
  2. DICLOFENAC [Suspect]
     Active Substance: DICLOFENAC
     Indication: Chest pain

REACTIONS (5)
  - Kounis syndrome [Unknown]
  - Confusional state [Unknown]
  - Hypotension [Unknown]
  - Rash maculo-papular [Unknown]
  - Rash pruritic [Unknown]
